FAERS Safety Report 10234520 (Version 1)
Quarter: 2014Q2

REPORT INFORMATION
  Report Type: Spontaneous
  Country: US (occurrence: US)
  Receive Date: 20140613
  Receipt Date: 20140613
  Transmission Date: 20141212
  Serious: No
  Sender: FDA-Public Use
  Company Number: US-009507513-1406USA001688

PATIENT
  Sex: Male

DRUGS (3)
  1. PEGINTRON [Suspect]
     Indication: HEPATITIS C
     Dosage: 150MCG/0.5ML, REDIPEN
     Dates: start: 20140324
  2. SOVALDI [Suspect]
  3. REBETOL [Suspect]

REACTIONS (6)
  - Influenza like illness [Unknown]
  - Chills [Unknown]
  - Pain [Unknown]
  - Malaise [Unknown]
  - Insomnia [Unknown]
  - Product quality issue [Unknown]
